FAERS Safety Report 19513964 (Version 1)
Quarter: 2021Q3

REPORT INFORMATION
  Report Type: Spontaneous
  Country: DE (occurrence: DE)
  Receive Date: 20210709
  Receipt Date: 20210709
  Transmission Date: 20211014
  Serious: Yes (Death, Other)
  Sender: FDA-Public Use
  Company Number: DE-MYLANLABS-2021M1039815

PATIENT
  Age: 47 Year
  Sex: Female

DRUGS (2)
  1. EVEROLIMUS. [Concomitant]
     Active Substance: EVEROLIMUS
     Dosage: 5 MG, BID
  2. SORAFENIB MYLAN [Suspect]
     Active Substance: SORAFENIB
     Indication: EPITHELIOID MESOTHELIOMA
     Dosage: 200 MG, BID

REACTIONS (9)
  - Epithelioid mesothelioma [Fatal]
  - Metastases to lung [Unknown]
  - Gastrointestinal disorder [Unknown]
  - Off label use [Unknown]
  - Metastases to bone [Unknown]
  - Product use in unapproved indication [Unknown]
  - Metastases to spine [Unknown]
  - Tumour pain [Unknown]
  - Metastases to liver [Unknown]
